FAERS Safety Report 6473517-6 (Version None)
Quarter: 2009Q4

REPORT INFORMATION
  Report Type: 
  Country: None (occurrence: None)
  Receive Date: 20091204
  Receipt Date: 20081031
  Transmission Date: 20100525
  Serious: Yes (Death, Other)
  Sender: FDA-Public Use
  Company Number: US-ELI_LILLY_AND_COMPANY-US200810000824

PATIENT
  Sex: Female

DRUGS (15)
  1. CYMBALTA [Suspect]
     Indication: NEURALGIA
     Dosage: 30 MG, DAILY (1/D)
  2. OMEPRAZOLE SODIUM [Concomitant]
     Dosage: 20 D/F, DAILY (1/D)
  3. SIMVASTATIN [Concomitant]
     Dosage: 20 D/F, UNK
  4. REMERON [Concomitant]
     Dosage: 15 UNK, UNK
  5. PREDNISONE [Concomitant]
     Dosage: 5 D/F, DAILY (1/D)
  6. VITAMIN D [Concomitant]
     Dosage: 1000 U, DAILY (1/D)
  7. ABILIFY [Concomitant]
     Dosage: 5 MG, DAILY (1/D)
  8. COLACE [Concomitant]
     Dosage: 100 MG, 2/D
  9. NEURONTIN [Concomitant]
     Dosage: 100 D/F, UNK
  10. OSCAL [Concomitant]
     Dosage: 500 D/F, 3/D
  11. FOSAMAX [Concomitant]
     Dosage: 70 D/F, WEEKLY (1/W)
  12. DILAUDID [Concomitant]
     Indication: PAIN
     Dosage: 4 MG, EVERY 4 HRS
  13. ATIVAN [Concomitant]
     Dosage: 1 MG, EVERY 4 HRS
  14. LABETALOL HCL [Concomitant]
     Dosage: 50 D/F, DAILY (1/D)
  15. METHADONE [Concomitant]
     Dosage: 20 D/F, UNK

REACTIONS (2)
  - CARDIO-RESPIRATORY ARREST [None]
  - MYOCARDIAL INFARCTION [None]
